FAERS Safety Report 6572702-2 (Version None)
Quarter: 2010Q1

REPORT INFORMATION
  Report Type: 
  Country: None (occurrence: None)
  Receive Date: 20100205
  Receipt Date: 20100129
  Transmission Date: 20100710
  Serious: Yes (Other)
  Sender: FDA-Public Use
  Company Number: BR-JNJCH-2010003111

PATIENT
  Sex: Female

DRUGS (1)
  1. COOL MINT LISTERINE [Suspect]
     Indication: DRUG USE FOR UNKNOWN INDICATION
     Dosage: TEXT:1 FLASCK CAP TWICE DAILY
     Route: 048
     Dates: start: 20100125, end: 20100129

REACTIONS (3)
  - HYPOAESTHESIA ORAL [None]
  - ORAL MUCOSAL EXFOLIATION [None]
  - TREMOR [None]
